FAERS Safety Report 6614035-1 (Version None)
Quarter: 2010Q1

REPORT INFORMATION
  Report Type: 
  Country: None (occurrence: None)
  Receive Date: 20100304
  Receipt Date: 20100223
  Transmission Date: 20100710
  Serious: Yes (Other)
  Sender: FDA-Public Use
  Company Number: CA-ASTRAZENECA-2010SE07693

PATIENT
  Sex: Female

DRUGS (1)
  1. ARIMIDEX [Suspect]
     Route: 048
     Dates: start: 20091101, end: 20100101

REACTIONS (4)
  - LIP SWELLING [None]
  - PARAESTHESIA ORAL [None]
  - PHYSICAL PRODUCT LABEL ISSUE [None]
  - TRANSIENT ISCHAEMIC ATTACK [None]
